FAERS Safety Report 24293571 (Version 2)
Quarter: 2025Q3

REPORT INFORMATION
  Report Type: Spontaneous
  Country: US (occurrence: US)
  Receive Date: 20240906
  Receipt Date: 20250905
  Transmission Date: 20251020
  Serious: No
  Sender: DOMPE FARMACEUTICI
  Company Number: US-FARMAPROD-202308-202402-0407

PATIENT
  Age: 69 Year
  Sex: Female
  Weight: 58.51 kg

DRUGS (17)
  1. OXERVATE [Suspect]
     Active Substance: CENEGERMIN-BKBJ
     Indication: Neurotrophic keratopathy
     Route: 047
     Dates: start: 20240125, end: 20240321
  2. OXERVATE [Suspect]
     Active Substance: CENEGERMIN-BKBJ
  3. OXERVATE [Suspect]
     Active Substance: CENEGERMIN-BKBJ
     Route: 047
     Dates: start: 20240816
  4. OXERVATE [Suspect]
     Active Substance: CENEGERMIN-BKBJ
  5. OXERVATE [Suspect]
     Active Substance: CENEGERMIN-BKBJ
  6. OXERVATE [Suspect]
     Active Substance: CENEGERMIN-BKBJ
  7. OXERVATE [Suspect]
     Active Substance: CENEGERMIN-BKBJ
     Route: 047
     Dates: start: 20250120
  8. OXERVATE [Suspect]
     Active Substance: CENEGERMIN-BKBJ
  9. XIIDRA [Concomitant]
     Active Substance: LIFITEGRAST
  10. OPZELURA [Concomitant]
     Active Substance: RUXOLITINIB PHOSPHATE
  11. WHOLE BLOOD [Concomitant]
     Active Substance: WHOLE BLOOD
  12. RESTASIS [Concomitant]
     Active Substance: CYCLOSPORINE
  13. METOPROLOL TARTRATE [Concomitant]
     Active Substance: METOPROLOL TARTRATE
  14. GINKGO [Concomitant]
     Active Substance: GINKGO
  15. LEXAPRO [Concomitant]
     Active Substance: ESCITALOPRAM OXALATE
  16. SEROQUEL [Concomitant]
     Active Substance: QUETIAPINE FUMARATE
  17. ALGAECAL PLUS [Concomitant]

REACTIONS (11)
  - Eye pain [Not Recovered/Not Resolved]
  - Headache [Unknown]
  - Eyelid pain [Not Recovered/Not Resolved]
  - Eye discharge [Not Recovered/Not Resolved]
  - Vision blurred [Not Recovered/Not Resolved]
  - Ocular hyperaemia [Unknown]
  - Eye infection [Unknown]
  - Eye pruritus [Unknown]
  - Insomnia [Unknown]
  - Eye irritation [Not Recovered/Not Resolved]
  - Dry mouth [Unknown]

NARRATIVE: CASE EVENT DATE: 20240303
